FAERS Safety Report 25207918 (Version 1)
Quarter: 2025Q2

REPORT INFORMATION
  Report Type: Report from Study
  Country: MX (occurrence: MX)
  Receive Date: 20250417
  Receipt Date: 20250417
  Transmission Date: 20250716
  Serious: Yes (Other)
  Sender: NOVARTIS
  Company Number: MX-002147023-NVSC2025MX062559

PATIENT
  Age: 9 Year
  Sex: Male
  Weight: 39 kg

DRUGS (7)
  1. TEGRETOL [Suspect]
     Active Substance: CARBAMAZEPINE
     Indication: Excessive eye blinking
     Dosage: 2.5 DOSAGE FORM, BID
     Route: 048
     Dates: start: 20250202
  2. OLOPATADINE [Suspect]
     Active Substance: OLOPATADINE
     Indication: Eye irritation
     Dosage: 2 DOSAGE FORM, BID
     Route: 047
     Dates: start: 20250202
  3. OLOPATADINE [Suspect]
     Active Substance: OLOPATADINE
     Indication: Ocular hyperaemia
  4. Kedrop [Concomitant]
     Indication: Eye irritation
     Dosage: 2 DOSAGE FORM (5MG), BID
     Route: 047
     Dates: start: 20250202
  5. Kedrop [Concomitant]
     Indication: Ocular hyperaemia
  6. Lubrex [Concomitant]
     Indication: Eye irritation
     Dosage: 2 DOSAGE FORM, BID
     Route: 047
     Dates: start: 20250202
  7. Lubrex [Concomitant]
     Indication: Ocular hyperaemia

REACTIONS (2)
  - Cataract [Unknown]
  - Off label use [Unknown]

NARRATIVE: CASE EVENT DATE: 20250202
